FAERS Safety Report 10481640 (Version 1)
Quarter: 2014Q3

REPORT INFORMATION
  Report Type: Spontaneous
  Country: DE (occurrence: DE)
  Receive Date: 20140929
  Receipt Date: 20140929
  Transmission Date: 20150326
  Serious: Yes (Death, Other)
  Sender: FDA-Public Use
  Company Number: DE-SA-2014SA131082

PATIENT
  Age: 67 Year
  Sex: Male
  Weight: 74 kg

DRUGS (7)
  1. VALERIANA OFFICINALIS EXTRACT [Concomitant]
     Dosage: 3 SUGAR COATED TABLET.
  2. PANTOZOL [Concomitant]
     Active Substance: PANTOPRAZOLE SODIUM
     Dosage: STRENGTH:20MG
     Route: 048
     Dates: start: 20140522, end: 20140727
  3. CLEXANE [Suspect]
     Active Substance: ENOXAPARIN SODIUM
     Route: 058
     Dates: start: 20140522, end: 20140727
  4. GUTRON [Concomitant]
     Active Substance: MIDODRINE
     Dosage: STRENGTH:2.5MG
     Route: 048
     Dates: start: 20140610, end: 20140727
  5. LIORESAL [Concomitant]
     Active Substance: BACLOFEN
     Dosage: STRENGTH:10MG
     Route: 048
     Dates: end: 20140727
  6. GABAPENTIN. [Concomitant]
     Active Substance: GABAPENTIN
     Dosage: STRENGTH:300MG
     Route: 048
     Dates: start: 20140714, end: 20140727
  7. MOVICOL [Concomitant]
     Active Substance: POLYETHYLENE GLYCOL 3350\POTASSIUM CHLORIDE\SODIUM BICARBONATE\SODIUM CHLORIDE

REACTIONS (3)
  - Chest pain [Fatal]
  - Pulmonary embolism [Fatal]
  - Circulatory collapse [Unknown]

NARRATIVE: CASE EVENT DATE: 20140727
